FAERS Safety Report 6886966-9 (Version None)
Quarter: 2010Q3

REPORT INFORMATION
  Report Type: 
  Country: None (occurrence: None)
  Receive Date: 20100730
  Receipt Date: 20100720
  Transmission Date: 20110219
  Serious: Yes (Other)
  Sender: FDA-Public Use
  Company Number: CH-WYE-G06429610

PATIENT
  Age: 14 Year
  Sex: Female

DRUGS (4)
  1. EFFEXOR [Suspect]
     Indication: AGORAPHOBIA
     Route: 048
     Dates: start: 20060124, end: 20060212
  2. EFFEXOR [Suspect]
     Indication: OFF LABEL USE
  3. TRUXAL [Suspect]
     Indication: AGORAPHOBIA
     Route: 048
     Dates: start: 20060123, end: 20060211
  4. TRUXAL [Suspect]
     Indication: OFF LABEL USE
     Route: 048
     Dates: start: 20060212

REACTIONS (3)
  - CONDITION AGGRAVATED [None]
  - INTENTIONAL SELF-INJURY [None]
  - SUICIDAL IDEATION [None]
